FAERS Safety Report 12982477 (Version 1)
Quarter: 2016Q4

REPORT INFORMATION
  Report Type: Not Available
  Country: GB (occurrence: GB)
  Receive Date: 20161129
  Receipt Date: 20161129
  Transmission Date: 20170207
  Serious: Yes (Disabling)
  Sender: FDA-Public Use
  Company Number: GB-SYNTHON BV-NL01PV16_42474

PATIENT
  Age: 71 Year
  Sex: Male
  Weight: 68 kg

DRUGS (5)
  1. ALENDRONIC ACID [Concomitant]
     Active Substance: ALENDRONIC ACID
     Dosage: 70 MG, UNK
  2. LATANOPROST. [Concomitant]
     Active Substance: LATANOPROST
     Dosage: 50 ?G, LEFT EYE
     Route: 047
  3. LORATADINE. [Concomitant]
     Active Substance: LORATADINE
     Dosage: 10 MG, UNK
  4. CARBOMER [Concomitant]
     Active Substance: CARBOMER
     Dosage: 10 G, RIGHT EYE WHICH NOW HAS NO LENS
     Route: 047
  5. TAMSULOSIN [Suspect]
     Active Substance: TAMSULOSIN
     Indication: PROSTATOMEGALY
     Dosage: 400 ?G, QD, IN THE MORNING
     Route: 048
     Dates: start: 2010

REACTIONS (2)
  - Pupillary reflex impaired [Unknown]
  - Blindness unilateral [Unknown]
